FAERS Safety Report 19699626 (Version 1)
Quarter: 2021Q3

REPORT INFORMATION
  Report Type: Spontaneous
  Country: CA (occurrence: CA)
  Receive Date: 20210813
  Receipt Date: 20210813
  Transmission Date: 20211014
  Serious: Yes (Hospitalization, Other)
  Sender: FDA-Public Use
  Company Number: CA-TEVA-2021-CA-1940494

PATIENT
  Age: 72 Year
  Sex: Female

DRUGS (4)
  1. CIPROFLOXACIN. [Suspect]
     Active Substance: CIPROFLOXACIN
     Indication: PRODUCT USED FOR UNKNOWN INDICATION
     Route: 065
  2. CYTARABINE. [Interacting]
     Active Substance: CYTARABINE
     Indication: PRODUCT USED FOR UNKNOWN INDICATION
     Route: 065
  3. VENETOCLAX. [Interacting]
     Active Substance: VENETOCLAX
     Dosage: 600 MILLIGRAM DAILY;
     Route: 048
  4. VENETOCLAX. [Interacting]
     Active Substance: VENETOCLAX
     Indication: ACUTE MYELOID LEUKAEMIA
     Dosage: 300 MG/KG DAILY;
     Route: 048

REACTIONS (2)
  - Febrile neutropenia [Not Recovered/Not Resolved]
  - Drug interaction [Not Recovered/Not Resolved]
